FAERS Safety Report 22194465 (Version 1)
Quarter: 2023Q2

REPORT INFORMATION
  Report Type: Spontaneous
  Country: CN (occurrence: CN)
  Receive Date: 20230411
  Receipt Date: 20230411
  Transmission Date: 20230722
  Serious: Yes (Death, Other)
  Sender: FDA-Public Use
  Company Number: CN-STRIDES ARCOLAB LIMITED-2023SP004894

PATIENT
  Age: 19 Year
  Sex: Female

DRUGS (3)
  1. ETOPOSIDE [Suspect]
     Active Substance: ETOPOSIDE
     Indication: Ovarian germ cell endodermal sinus tumour
     Dosage: 250 MILLIGRAM/SQ. METER, BEP REGIMEN; ON DAYS 1-5, THE CYCLES REPEATED EVERY 3 WEEKS FOR 6 CYCLES, P
     Route: 065
  2. CISPLATIN [Suspect]
     Active Substance: CISPLATIN
     Indication: Ovarian germ cell endodermal sinus tumour
     Dosage: 20 MILLIGRAM/SQ. METER, BEP REGIMEN; ON DAYS 1-5, THE CYCLES REPEATED EVERY 3 WEEKS FOR 6 CYCLES, PE
     Route: 065
  3. BLEOMYCIN [Suspect]
     Active Substance: BLEOMYCIN SULFATE
     Indication: Ovarian germ cell endodermal sinus tumour
     Dosage: 15 MILLIGRAM, BEP REGIMEN; ON DAYS 1-3, THE CYCLES REPEATED EVERY 3 WEEKS FOR 6 CYCLES. PER DAY
     Route: 065

REACTIONS (3)
  - Death [Fatal]
  - Drug ineffective [Unknown]
  - Off label use [Unknown]
